FAERS Safety Report 6985592-0 (Version None)
Quarter: 2010Q3

REPORT INFORMATION
  Report Type: 
  Country: None (occurrence: None)
  Receive Date: 20100915
  Receipt Date: 20100616
  Transmission Date: 20110219
  Serious: No
  Sender: FDA-Public Use
  Company Number: A0869143A

PATIENT
  Age: 33 Year
  Sex: Male

DRUGS (1)
  1. NICORETTE MINI LOZENGE, 2MG [Suspect]
     Indication: PRODUCT USED FOR UNKNOWN INDICATION
     Route: 002

REACTIONS (2)
  - SALIVARY HYPERSECRETION [None]
  - SPEECH DISORDER [None]
